FAERS Safety Report 10668905 (Version 1)
Quarter: 2014Q4

REPORT INFORMATION
  Report Type: Spontaneous
  Country: US (occurrence: None)
  Receive Date: 20141208
  Receipt Date: 20141208
  Transmission Date: 20150529
  Serious: No
  Sender: FDA-Public Use
  Company Number: 2014TUS009075

PATIENT
  Age: 46 Year
  Sex: Female
  Weight: 59 kg

DRUGS (2)
  1. XANAX XR (ALPRAZOLAM) [Concomitant]
  2. BRINTELLIX [Suspect]
     Active Substance: VORTIOXETINE HYDROBROMIDE
     Indication: ANXIETY DISORDER
     Route: 048
     Dates: start: 20140715

REACTIONS (2)
  - Tic [None]
  - Off label use [None]

NARRATIVE: CASE EVENT DATE: 20140715
